FAERS Safety Report 21385869 (Version 2)
Quarter: 2022Q3

REPORT INFORMATION
  Report Type: Spontaneous
  Country: NL (occurrence: NL)
  Receive Date: 20220928
  Receipt Date: 20220929
  Transmission Date: 20221027
  Serious: Yes (Life-Threatening)
  Sender: FDA-Public Use
  Company Number: None

PATIENT
  Sex: Male
  Weight: 75 kg

DRUGS (1)
  1. TERBINAFINE [Suspect]
     Active Substance: TERBINAFINE
     Indication: Onychomycosis
     Dosage: 250 MG, QD ((1X PER DAG 1 STUK) (GENEESMIDDEL VOORGESCHREVEN DOOR ARTS: JA))
     Route: 065
     Dates: start: 20210601

REACTIONS (1)
  - Psychotic disorder [Recovering/Resolving]
